FAERS Safety Report 5009075-2 (Version None)
Quarter: 2006Q2

REPORT INFORMATION
  Report Type: 
  Country: None (occurrence: None)
  Receive Date: 20060519
  Receipt Date: 20060509
  Transmission Date: 20061013
  Serious: Yes (Death)
  Sender: FDA-Public Use
  Company Number: 224860

PATIENT
  Sex: Female

DRUGS (4)
  1. AVASTIN [Suspect]
     Indication: BREAST CANCER METASTATIC
     Dosage: 300 MG
     Dates: start: 20050627
  2. HERCEPTIN [Suspect]
     Indication: BREAST CANCER METASTATIC
  3. FLUOROURACIL [Concomitant]
  4. METHOTREXATE [Concomitant]

REACTIONS (1)
  - DEATH [None]
